FAERS Safety Report 25189707 (Version 1)
Quarter: 2025Q2

REPORT INFORMATION
  Report Type: Report from Study
  Country: US (occurrence: US)
  Receive Date: 20250411
  Receipt Date: 20250411
  Transmission Date: 20250716
  Serious: Yes (Hospitalization, Other)
  Sender: ABBVIE
  Company Number: US-ABBVIE-6220811

PATIENT
  Age: 66 Year
  Sex: Female

DRUGS (1)
  1. LINZESS [Suspect]
     Active Substance: LINACLOTIDE
     Indication: Product used for unknown indication
     Dosage: 290 ONE DAILY
     Route: 048
     Dates: start: 2020

REACTIONS (1)
  - Obstruction [Recovering/Resolving]

NARRATIVE: CASE EVENT DATE: 20250101
